FAERS Safety Report 4433063-8 (Version None)
Quarter: 2004Q3

REPORT INFORMATION
  Report Type: 
  Country: None (occurrence: None)
  Receive Date: 20040823
  Receipt Date: 20040817
  Transmission Date: 20050211
  Serious: Yes (Death)
  Sender: FDA-Public Use
  Company Number: 2004UW10824

PATIENT
  Age: 50 Year
  Sex: Female
  Weight: 50.8029 kg

DRUGS (2)
  1. FASLODEX [Suspect]
     Indication: BREAST CANCER
     Dates: start: 20040407, end: 20040407
  2. FASLODEX [Suspect]
     Indication: BREAST CANCER
     Dates: start: 20040503, end: 20040503

REACTIONS (6)
  - CARCINOMA [None]
  - CARDIAC FAILURE CONGESTIVE [None]
  - DYSPNOEA [None]
  - LYMPHANGITIS [None]
  - METASTASES TO LUNG [None]
  - WHEEZING [None]
